FAERS Safety Report 4368025-2 (Version None)
Quarter: 2004Q2

REPORT INFORMATION
  Report Type: 
  Country: None (occurrence: None)
  Receive Date: 20040527
  Receipt Date: 20040220
  Transmission Date: 20050107
  Serious: No
  Sender: FDA-Public Use
  Company Number: 204837

PATIENT
  Age: 52 Year
  Sex: Female

DRUGS (2)
  1. RAPTIVA [Suspect]
     Indication: PSORIASIS
     Dosage: 0.5 ML, 1/WEEK, SUBCUTANEOUS; 0.8 ML, 1/WEEK, SUBCUTANEOUS
     Route: 058
  2. DOVONEX [Concomitant]

REACTIONS (1)
  - PRURITUS [None]
